FAERS Safety Report 13232051 (Version 1)
Quarter: 2017Q1

REPORT INFORMATION
  Report Type: Spontaneous
  Country: US (occurrence: US)
  Receive Date: 20170214
  Receipt Date: 20170214
  Transmission Date: 20170428
  Serious: Yes (Disabling, Other)
  Sender: FDA-Public Use
  Company Number: US-MALLINCKRODT-T201700446

PATIENT
  Sex: Male

DRUGS (2)
  1. GABLOFEN [Suspect]
     Active Substance: BACLOFEN
     Indication: MUSCLE SPASTICITY
     Dosage: 673.5 ?G, QD
     Route: 037
     Dates: start: 20160902
  2. LIORESAL [Concomitant]
     Active Substance: BACLOFEN
     Dosage: 273.5 ?G, QD
     Route: 037
     Dates: start: 20160613

REACTIONS (4)
  - Device failure [Unknown]
  - Quadriplegia [Unknown]
  - Tremor [Unknown]
  - Drug withdrawal syndrome [Unknown]
